FAERS Safety Report 7061790-5 (Version None)
Quarter: 2010Q4

REPORT INFORMATION
  Report Type: 
  Country: None (occurrence: None)
  Receive Date: 20101026
  Receipt Date: 20101018
  Transmission Date: 20110411
  Serious: Yes (Hospitalization, Other)
  Sender: FDA-Public Use
  Company Number: BR-GENZYME-THYM-1001908

PATIENT
  Sex: Male

DRUGS (1)
  1. THYMOGLOBULIN [Suspect]
     Indication: MEDICATION ERROR
     Dosage: 5 ML, ONCE
     Route: 030
     Dates: start: 20101001, end: 20101001

REACTIONS (8)
  - CELLULITIS [None]
  - GAIT DISTURBANCE [None]
  - INCORRECT ROUTE OF DRUG ADMINISTRATION [None]
  - INJECTION SITE REACTION [None]
  - OEDEMA [None]
  - PAIN [None]
  - VISION BLURRED [None]
  - WRONG DRUG ADMINISTERED [None]
